FAERS Safety Report 7267835-1 (Version None)
Quarter: 2011Q1

REPORT INFORMATION
  Report Type: 
  Country: None (occurrence: None)
  Receive Date: 20110201
  Receipt Date: 20110128
  Transmission Date: 20110831
  Serious: Yes (Hospitalization)
  Sender: FDA-Public Use
  Company Number: B0696767A

PATIENT
  Age: 52 Year
  Sex: Male

DRUGS (1)
  1. AVANDIA [Suspect]
     Indication: DIABETES MELLITUS
     Dosage: 4MG TWICE PER DAY
     Route: 048

REACTIONS (6)
  - HYPOTONIA [None]
  - WEIGHT INCREASED [None]
  - LOSS OF LIBIDO [None]
  - ATRIOVENTRICULAR BLOCK [None]
  - ERECTILE DYSFUNCTION [None]
  - CARDIAC DISORDER [None]
